FAERS Safety Report 13675497 (Version 1)
Quarter: 2017Q2

REPORT INFORMATION
  Report Type: Spontaneous
  Country: PL (occurrence: PL)
  Receive Date: 20170621
  Receipt Date: 20170621
  Transmission Date: 20170830
  Serious: Yes (Other)
  Sender: FDA-Public Use
  Company Number: PL-BAUSCH-BL-2017-019455

PATIENT
  Sex: Male

DRUGS (5)
  1. CISPLATIN. [Suspect]
     Active Substance: CISPLATIN
     Indication: RETROPERITONEAL NEOPLASM
     Dosage: EVERY CYCLE
     Route: 065
     Dates: start: 2016, end: 2016
  2. CYCLOPHOSPHAMIDE. [Suspect]
     Active Substance: CYCLOPHOSPHAMIDE
     Indication: RETROPERITONEAL NEOPLASM
     Dosage: EVERY CYCLE
     Route: 065
     Dates: start: 201602
  3. VINCRISTINE SULFATE. [Suspect]
     Active Substance: VINCRISTINE SULFATE
     Indication: RETROPERITONEAL NEOPLASM
     Dosage: EVERY CYCLE
     Route: 065
     Dates: start: 201602
  4. DOXORUBICIN [Suspect]
     Active Substance: DOXORUBICIN
     Indication: RETROPERITONEAL NEOPLASM
     Dosage: EVERY CYCLE
     Route: 065
     Dates: start: 201602
  5. FLUOROURACIL. [Suspect]
     Active Substance: FLUOROURACIL
     Indication: RETROPERITONEAL NEOPLASM
     Dosage: EVERY CYCLE
     Route: 065
     Dates: start: 2016, end: 2016

REACTIONS (1)
  - Retroperitoneal neoplasm [Unknown]
